FAERS Safety Report 8288360-5 (Version None)
Quarter: 2012Q2

REPORT INFORMATION
  Report Type: 
  Country: None (occurrence: None)
  Receive Date: 20120416
  Receipt Date: 20120410
  Transmission Date: 20120825
  Serious: Yes (Death, Other)
  Sender: FDA-Public Use
  Company Number: CN-PFIZER INC-2012089768

PATIENT
  Age: 14 Year
  Sex: Male

DRUGS (1)
  1. SOLU-MEDROL [Suspect]

REACTIONS (2)
  - DEATH [None]
  - HAEMORRHAGE [None]
